FAERS Safety Report 10668992 (Version 1)
Quarter: 2014Q4

REPORT INFORMATION
  Report Type: Spontaneous
  Country: US (occurrence: US)
  Receive Date: 20141222
  Receipt Date: 20141222
  Transmission Date: 20150529
  Serious: No
  Sender: FDA-Public Use
  Company Number: US-BAUSCH-BL-2014-006201

PATIENT
  Age: 73 Year
  Sex: Male
  Weight: 71.28 kg

DRUGS (4)
  1. XENAZINE [Suspect]
     Active Substance: TETRABENAZINE
     Indication: MYOCLONUS
     Route: 048
     Dates: start: 20140925
  2. CARBIDOPA/LEVODOPA [Concomitant]
     Active Substance: CARBIDOPA\LEVODOPA
     Indication: PRODUCT USED FOR UNKNOWN INDICATION
  3. DEPAKOTE [Concomitant]
     Active Substance: DIVALPROEX SODIUM
     Indication: MOVEMENT DISORDER
     Route: 048
  4. CLONAZEPAM. [Concomitant]
     Active Substance: CLONAZEPAM
     Indication: PRODUCT USED FOR UNKNOWN INDICATION

REACTIONS (3)
  - Emotional disorder [Unknown]
  - Intentional product use issue [Not Recovered/Not Resolved]
  - Crying [Unknown]

NARRATIVE: CASE EVENT DATE: 20140926
